FAERS Safety Report 4634206-3 (Version None)
Quarter: 2005Q2

REPORT INFORMATION
  Report Type: 
  Country: None (occurrence: None)
  Receive Date: 20050413
  Receipt Date: 20050405
  Transmission Date: 20051028
  Serious: Yes (Other)
  Sender: FDA-Public Use
  Company Number: BR-JNJFOC-20050402374

PATIENT
  Age: 3 Year
  Sex: Male

DRUGS (4)
  1. CHILDREN'S TYLENOL [Suspect]
  2. CHILDREN'S TYLENOL [Suspect]
  3. AMOXICILLIN [Concomitant]
  4. CARBOCISTEINE [Concomitant]

REACTIONS (2)
  - ANGIONEUROTIC OEDEMA [None]
  - CHEST PAIN [None]
